FAERS Safety Report 7594024-3 (Version None)
Quarter: 2011Q3

REPORT INFORMATION
  Report Type: 
  Country: None (occurrence: None)
  Receive Date: 20110706
  Receipt Date: 20110623
  Transmission Date: 20111222
  Serious: No
  Sender: FDA-Public Use
  Company Number: US-CELGENEUS-163-21880-11040116

PATIENT
  Sex: Female
  Weight: 87.168 kg

DRUGS (15)
  1. REVLIMID [Suspect]
     Indication: MULTIPLE MYELOMA
     Dosage: 10 MILLIGRAM
     Route: 048
     Dates: start: 20110209
  2. REVLIMID [Suspect]
     Dosage: 25 MILLIGRAM
     Route: 048
     Dates: start: 20110309
  3. WOMEN'S VITAMINS [Concomitant]
     Route: 065
  4. VITAMIN D [Concomitant]
     Route: 065
  5. VELCADE [Concomitant]
     Dosage: 1.4 MILLIGRAM
     Route: 051
  6. ADVAIR DISKUS 100/50 [Concomitant]
     Route: 065
  7. CALCIUM CARBONATE [Concomitant]
     Route: 065
  8. FAMCICLOVIR [Concomitant]
     Route: 065
  9. FERROUS SULFATE TAB [Concomitant]
     Route: 065
  10. LEVOTHYROXINE SODIUM [Concomitant]
     Dosage: 100 MICROGRAM
     Route: 065
  11. DEXAMETHASONE [Concomitant]
     Dosage: 20 MILLIGRAM
     Route: 048
  12. METOPROLOL TARTRATE [Concomitant]
     Dosage: 50 MILLIGRAM
     Route: 065
  13. REVLIMID [Suspect]
     Dosage: 15 MILLIGRAM
     Route: 048
     Dates: start: 20110406
  14. CARTIA XT [Concomitant]
     Route: 065
  15. WARFARIN SODIUM [Concomitant]
     Dosage: 4 MILLIGRAM
     Route: 048

REACTIONS (3)
  - NAUSEA [None]
  - BALANCE DISORDER [None]
  - TREMOR [None]
